FAERS Safety Report 22534425 (Version 1)
Quarter: 2023Q2

REPORT INFORMATION
  Report Type: Spontaneous
  Country: CN (occurrence: CN)
  Receive Date: 20230608
  Receipt Date: 20230608
  Transmission Date: 20230721
  Serious: Yes (Hospitalization, Other)
  Sender: FDA-Public Use
  Company Number: None

PATIENT
  Age: 42 Year
  Sex: Female
  Weight: 55.5 kg

DRUGS (6)
  1. CYCLOPHOSPHAMIDE [Suspect]
     Active Substance: CYCLOPHOSPHAMIDE
     Indication: Breast cancer female
     Dosage: 750 MG, QD, DILUTED WITH 500 ML OF 0.9% SODIUM CHLORIDE INJECTION
     Route: 042
     Dates: start: 20230508, end: 20230508
  2. SODIUM CHLORIDE [Suspect]
     Active Substance: SODIUM CHLORIDE
     Indication: Medication dilution
     Dosage: 0.9%, 500 ML, QD, USED TO DILUTE 750 MG OF CYCLOPHOSPHAMIDE FOR INJECTION
     Route: 042
     Dates: start: 20230508, end: 20230508
  3. SODIUM CHLORIDE [Suspect]
     Active Substance: SODIUM CHLORIDE
     Dosage: 250 ML, QD, USED TO DILUTE 390 MG OF PACLITAXEL FOR INJECTION (ALBUMIN-BINDING)
     Route: 041
     Dates: start: 20230508, end: 20230508
  4. DEXTROSE [Suspect]
     Active Substance: DEXTROSE\DEXTROSE MONOHYDRATE
     Indication: Medication dilution
     Dosage: 250 ML, QD, USED TO DILUTE 75 MG OF PIRARUBICIN HYDROCHLORIDE FOR INJECTION
     Route: 042
     Dates: start: 20230508, end: 20230508
  5. PIRARUBICIN HYDROCHLORIDE [Suspect]
     Active Substance: PIRARUBICIN HYDROCHLORIDE
     Indication: Breast cancer female
     Dosage: 75 MG, QD, DILUTED WITH 250 ML OF GLUCOSE INJECTION
     Route: 042
     Dates: start: 20230508, end: 20230508
  6. PACLITAXEL [Suspect]
     Active Substance: PACLITAXEL
     Indication: Breast cancer female
     Dosage: 390 MG, QD, DILUTED WITH 250 ML OF 0.9% SODIUM CHLORIDE INJECTION
     Route: 041
     Dates: start: 20230508, end: 20230508

REACTIONS (1)
  - Myelosuppression [Recovering/Resolving]

NARRATIVE: CASE EVENT DATE: 20230515
